FAERS Safety Report 4405153-7 (Version None)
Quarter: 2004Q3

REPORT INFORMATION
  Report Type: 
  Country: None (occurrence: None)
  Receive Date: 20040722
  Receipt Date: 20040722
  Transmission Date: 20050211
  Serious: Yes (Death)
  Sender: FDA-Public Use
  Company Number: None

PATIENT
  Age: 46 Year
  Sex: Female
  Weight: 67.1324 kg

DRUGS (3)
  1. NEURONTIN [Suspect]
     Indication: POST PROCEDURAL PAIN
     Dosage: 300 MG TID PO
     Route: 048
     Dates: start: 20040610, end: 20040726
  2. TYLENOL W/ CODEINE NO. 3 [Concomitant]
  3. VOLTAREN [Concomitant]

REACTIONS (1)
  - COMPLETED SUICIDE [None]
